FAERS Safety Report 5874475-5 (Version None)
Quarter: 2008Q3

REPORT INFORMATION
  Report Type: 
  Country: None (occurrence: None)
  Receive Date: 20080908
  Receipt Date: 20080827
  Transmission Date: 20090109
  Serious: Yes (Other)
  Sender: FDA-Public Use
  Company Number: IN-PFIZER INC-2008071149

PATIENT
  Age: 27 Year
  Sex: Female
  Weight: 50 kg

DRUGS (2)
  1. PHENYTOIN [Suspect]
     Indication: CONVULSION
  2. ACENOCOUMAROL [Interacting]
     Indication: ANTICOAGULANT THERAPY
     Dosage: DAILY DOSE:.5MG

REACTIONS (4)
  - DRUG INTERACTION [None]
  - INTERNATIONAL NORMALISED RATIO INCREASED [None]
  - STATUS EPILEPTICUS [None]
  - THERAPEUTIC AGENT TOXICITY [None]
